FAERS Safety Report 20833348 (Version 1)
Quarter: 2022Q2

REPORT INFORMATION
  Report Type: Spontaneous
  Country: US (occurrence: None)
  Receive Date: 20220516
  Receipt Date: 20220516
  Transmission Date: 20220720
  Serious: No
  Sender: FDA-Public Use
  Company Number: US-Merck Healthcare KGaA-9318884

PATIENT
  Sex: Female

DRUGS (1)
  1. CETROTIDE [Suspect]
     Active Substance: CETRORELIX ACETATE
     Indication: Product used for unknown indication
     Dosage: POWDER AND SOLVENT FOR SOLUTION FOR INJECTION

REACTIONS (2)
  - Urticaria [Unknown]
  - Product reconstitution quality issue [Unknown]
